FAERS Safety Report 24918291 (Version 2)
Quarter: 2025Q1

REPORT INFORMATION
  Report Type: Spontaneous
  Country: US (occurrence: US)
  Receive Date: 20250203
  Receipt Date: 20250206
  Transmission Date: 20250409
  Serious: No
  Sender: PFIZER
  Company Number: US-PFIZER INC-202400300049

PATIENT
  Age: 74 Year
  Sex: Male

DRUGS (2)
  1. BOSULIF [Suspect]
     Active Substance: BOSUTINIB MONOHYDRATE
     Dosage: 900 MG, DAILY, 3 CAPSULES (900 MG TOTAL) EVERY MORNING
     Route: 048
  2. BOSULIF [Suspect]
     Active Substance: BOSUTINIB MONOHYDRATE
     Dosage: 300 MG, DAILY,100 MG TAKE 3 CAPSULES DAILY

REACTIONS (2)
  - Product prescribing error [Unknown]
  - Wrong strength [Unknown]
